FAERS Safety Report 5908928-8 (Version None)
Quarter: 2008Q4

REPORT INFORMATION
  Report Type: 
  Country: None (occurrence: None)
  Receive Date: 20081006
  Receipt Date: 20081002
  Transmission Date: 20090506
  Serious: Yes (Hospitalization, Other)
  Sender: FDA-Public Use
  Company Number: US-ELI_LILLY_AND_COMPANY-US200810000517

PATIENT
  Age: 52 Year
  Sex: Male

DRUGS (3)
  1. HUMULIN R [Suspect]
     Indication: DIABETES MELLITUS
  2. LANTUS [Concomitant]
     Indication: DIABETES MELLITUS
     Dosage: UNK, UNK
     Dates: start: 20080601
  3. INSULIN ASPART [Concomitant]
     Indication: DIABETES MELLITUS

REACTIONS (3)
  - PNEUMONIA [None]
  - RENAL FAILURE [None]
  - RHEUMATOID ARTHRITIS [None]
